FAERS Safety Report 23233181 (Version 1)
Quarter: 2023Q4

REPORT INFORMATION
  Report Type: Spontaneous
  Country: CN (occurrence: CN)
  Receive Date: 20231128
  Receipt Date: 20231128
  Transmission Date: 20240109
  Serious: Yes (Other)
  Sender: FDA-Public Use
  Company Number: CN-SA-SAC20231122001180

PATIENT
  Age: 63 Year
  Sex: Male
  Weight: 76 kg

DRUGS (2)
  1. CLOPIDOGREL BISULFATE [Suspect]
     Active Substance: CLOPIDOGREL BISULFATE
     Indication: Platelet aggregation inhibition
     Dosage: 75 MG, QD
     Route: 048
     Dates: start: 20231110, end: 20231111
  2. IODIXANOL [Suspect]
     Active Substance: IODIXANOL
     Indication: Arteriogram carotid
     Dosage: 32 G, QD
     Route: 040
     Dates: start: 20231110, end: 20231110

REACTIONS (5)
  - Drug eruption [Recovering/Resolving]
  - Erythema [Recovering/Resolving]
  - Papule [Recovering/Resolving]
  - Pruritus [Recovering/Resolving]
  - Flushing [Recovering/Resolving]

NARRATIVE: CASE EVENT DATE: 20231111
